FAERS Safety Report 24091315 (Version 1)
Quarter: 2024Q3

REPORT INFORMATION
  Report Type: Spontaneous
  Country: ES (occurrence: ES)
  Receive Date: 20240715
  Receipt Date: 20240715
  Transmission Date: 20241017
  Serious: No
  Sender: PFIZER
  Company Number: ES-BRISTOL-MYERS SQUIBB COMPANY-BMS-2018-072624

PATIENT
  Age: 25 Year
  Sex: Male

DRUGS (10)
  1. BRENTUXIMAB VEDOTIN [Suspect]
     Active Substance: BRENTUXIMAB VEDOTIN
     Route: 065
  2. CISPLATIN [Suspect]
     Active Substance: CISPLATIN
     Indication: Hodgkin^s disease
     Route: 065
  3. CYTARABINE [Suspect]
     Active Substance: CYTARABINE
     Indication: Hodgkin^s disease
     Dosage: UNK
  4. DOXORUBICIN HYDROCHLORIDE [Suspect]
     Active Substance: DOXORUBICIN HYDROCHLORIDE
     Indication: Hodgkin^s disease
     Dosage: 6, CYCLIC
     Route: 065
  5. OPDIVO [Suspect]
     Active Substance: NIVOLUMAB
     Indication: Hodgkin^s disease
     Dosage: UNK
     Route: 065
  6. BLEOMYCIN [Suspect]
     Active Substance: BLEOMYCIN SULFATE
     Indication: Hodgkin^s disease
     Route: 065
  7. DACARBAZINE [Suspect]
     Active Substance: DACARBAZINE
     Indication: Hodgkin^s disease
     Dosage: 6, CYCLIC
  8. ETOPOSIDE [Suspect]
     Active Substance: ETOPOSIDE
     Indication: Hodgkin^s disease
     Route: 065
  9. METHYLPREDNISOLONE [Suspect]
     Active Substance: METHYLPREDNISOLONE
     Indication: Hodgkin^s disease
     Route: 065
  10. VINBLASTINE SULFATE [Suspect]
     Active Substance: VINBLASTINE SULFATE
     Indication: Hodgkin^s disease
     Dosage: 6, CYCLIC
     Route: 065

REACTIONS (2)
  - Neoplasm recurrence [Unknown]
  - Off label use [Unknown]
